FAERS Safety Report 21218099 (Version 1)
Quarter: 2022Q3

REPORT INFORMATION
  Report Type: Spontaneous
  Country: CA (occurrence: CA)
  Receive Date: 20220816
  Receipt Date: 20220816
  Transmission Date: 20221026
  Serious: Yes (Other)
  Sender: FDA-Public Use
  Company Number: CA-BAYER-2022A109468

PATIENT
  Age: 75 Year
  Sex: Female

DRUGS (1)
  1. LORATADINE\PSEUDOEPHEDRINE SULFATE [Suspect]
     Active Substance: LORATADINE\PSEUDOEPHEDRINE SULFATE

REACTIONS (5)
  - Haematochezia [None]
  - Abdominal discomfort [None]
  - Nausea [None]
  - Diarrhoea [None]
  - Faeces discoloured [None]
